FAERS Safety Report 14697900 (Version 1)
Quarter: 2018Q1

REPORT INFORMATION
  Report Type: Spontaneous
  Country: US (occurrence: US)
  Receive Date: 20180330
  Receipt Date: 20180330
  Transmission Date: 20180509
  Serious: No
  Sender: FDA-Public Use
  Company Number: US-SANOFI-AVENTIS-2012SA056916

PATIENT
  Age: 11 Year
  Sex: Male

DRUGS (2)
  1. ALLEGRA [Suspect]
     Active Substance: FEXOFENADINE HYDROCHLORIDE
     Indication: COUGH
     Route: 048
     Dates: end: 20120802
  2. ALLEGRA [Suspect]
     Active Substance: FEXOFENADINE HYDROCHLORIDE
     Indication: COUGH
     Route: 048
     Dates: end: 20120802

REACTIONS (5)
  - Vomiting [Unknown]
  - Cough [Not Recovered/Not Resolved]
  - Unevaluable event [Unknown]
  - Dyspnoea [Not Recovered/Not Resolved]
  - Drug ineffective [Unknown]
